FAERS Safety Report 20500475 (Version 1)
Quarter: 2022Q1

REPORT INFORMATION
  Report Type: Other
  Country: CA (occurrence: CA)
  Receive Date: 20220222
  Receipt Date: 20220222
  Transmission Date: 20220424
  Serious: Yes (Death)
  Sender: FDA-Public Use
  Company Number: CA-CELLTRION INC.-2022CA002063

PATIENT

DRUGS (16)
  1. RITUXIMAB [Suspect]
     Active Substance: RITUXIMAB
     Indication: Rheumatoid arthritis
     Dosage: UNK
     Route: 041
  2. RITUXIMAB [Suspect]
     Active Substance: RITUXIMAB
     Dosage: UNK
     Route: 042
  3. ACTEMRA [Suspect]
     Active Substance: TOCILIZUMAB
     Indication: Rheumatoid arthritis
     Dosage: 162 MG, 1 EVERY 1 WEEK
     Route: 058
  4. ACTEMRA [Suspect]
     Active Substance: TOCILIZUMAB
     Indication: Rheumatoid arthritis
     Dosage: 162 MG, 1 EVERY 1 WEEK
     Route: 058
  5. ADVAIR HFA [Concomitant]
     Active Substance: FLUTICASONE PROPIONATE\SALMETEROL XINAFOATE
  6. CALCIUM [Concomitant]
     Active Substance: CALCIUM
  7. FOLIC ACID [Concomitant]
     Active Substance: FOLIC ACID
  8. FUROSEMIDE [Concomitant]
     Active Substance: FUROSEMIDE
     Route: 065
  9. IRBESARTAN [Concomitant]
     Active Substance: IRBESARTAN
     Route: 065
  10. LEVOTHYROXINE SODIUM [Concomitant]
     Active Substance: LEVOTHYROXINE SODIUM
     Route: 065
  11. OLODATEROL HYDROCHLORIDE\TIOTROPIUM BROMIDE MONOHYDRATE [Concomitant]
     Active Substance: OLODATEROL HYDROCHLORIDE\TIOTROPIUM BROMIDE MONOHYDRATE
  12. PANTOPRAZOLE [Concomitant]
     Active Substance: PANTOPRAZOLE
     Route: 065
  13. PREDNISONE [Concomitant]
     Active Substance: PREDNISONE
  14. RISEDRONATE SODIUM [Concomitant]
     Active Substance: RISEDRONATE SODIUM
  15. ALBUTEROL [Concomitant]
     Active Substance: ALBUTEROL
  16. SPIRIVA [Concomitant]
     Active Substance: TIOTROPIUM BROMIDE MONOHYDRATE
     Route: 065

REACTIONS (2)
  - Cardiac disorder [Fatal]
  - Respiration abnormal [Fatal]
